FAERS Safety Report 7997313-3 (Version None)
Quarter: 2011Q4

REPORT INFORMATION
  Report Type: 
  Country: None (occurrence: None)
  Receive Date: 20111221
  Receipt Date: 20111209
  Transmission Date: 20120403
  Serious: Yes (Other)
  Sender: FDA-Public Use
  Company Number: US-JNJFOC-20111206272

PATIENT
  Sex: Male

DRUGS (1)
  1. ZYTIGA [Suspect]
     Indication: PRODUCT USED FOR UNKNOWN INDICATION
     Route: 048
     Dates: start: 20110101

REACTIONS (5)
  - METASTASIS [None]
  - RIB FRACTURE [None]
  - LIVER FUNCTION TEST ABNORMAL [None]
  - PROSTATIC SPECIFIC ANTIGEN INCREASED [None]
  - PLEURAL EFFUSION [None]
